FAERS Safety Report 9075105 (Version 1)
Quarter: 2013Q1

REPORT INFORMATION
  Report Type: Spontaneous
  Country: US (occurrence: US)
  Receive Date: 20130129
  Receipt Date: 20130129
  Transmission Date: 20140127
  Serious: Yes (Other)
  Sender: FDA-Public Use
  Company Number: US-TEVA-382805USA

PATIENT
  Sex: Female
  Weight: 108.96 kg

DRUGS (10)
  1. NUVIGIL [Suspect]
     Indication: SOMNOLENCE
     Dates: start: 20121207
  2. SYNTHROID [Concomitant]
     Indication: HYPOTHYROIDISM
  3. TRAMADOL [Concomitant]
     Indication: ARTHRALGIA
  4. KEPPRA [Concomitant]
     Indication: CONVULSION
  5. GABAPENTIN [Concomitant]
     Indication: SLEEP APNOEA SYNDROME
  6. SINGULAIR [Concomitant]
     Indication: HYPERSENSITIVITY
  7. TRAVASTATIN [Concomitant]
     Indication: DIABETES MELLITUS
  8. PRILOSEC [Concomitant]
     Indication: GASTROOESOPHAGEAL REFLUX DISEASE
  9. HUMALOG [Concomitant]
     Indication: DIABETES MELLITUS
  10. LANTUS [Concomitant]
     Indication: DIABETES MELLITUS

REACTIONS (1)
  - Convulsion [Recovered/Resolved]
